FAERS Safety Report 5008199-3 (Version None)
Quarter: 2006Q2

REPORT INFORMATION
  Report Type: 
  Country: None (occurrence: None)
  Receive Date: 20060522
  Receipt Date: 20060515
  Transmission Date: 20061013
  Serious: Yes (Other)
  Sender: FDA-Public Use
  Company Number: GB-MERCK-0605GBR00073

PATIENT
  Age: 70 Year
  Sex: Male

DRUGS (2)
  1. ZOCOR [Suspect]
     Indication: CARDIOVASCULAR EVENT PROPHYLAXIS
     Route: 048
     Dates: start: 20050901, end: 20060301
  2. CITALOPRAM [Concomitant]
     Route: 048

REACTIONS (1)
  - GLOBAL AMNESIA [None]
